FAERS Safety Report 23542347 (Version 1)
Quarter: 2024Q1

REPORT INFORMATION
  Report Type: Spontaneous
  Country: US (occurrence: US)
  Receive Date: 20240220
  Receipt Date: 20240220
  Transmission Date: 20240410
  Serious: Yes (Death)
  Sender: FDA-Public Use
  Company Number: US-AMNEAL PHARMACEUTICALS-2024-AMRX-00476

PATIENT
  Sex: Male
  Weight: 68.027 kg

DRUGS (1)
  1. RYTARY [Suspect]
     Active Substance: CARBIDOPA\LEVODOPA
     Indication: Parkinson^s disease
     Dosage: 2 CAPSULES, 4 /DAY (5 HOURS APART AT 8 AM, 1 PM, 6 PM AND 11 PM)
     Route: 048

REACTIONS (1)
  - Parkinson^s disease [Fatal]
